FAERS Safety Report 4839289-3 (Version None)
Quarter: 2005Q4

REPORT INFORMATION
  Report Type: 
  Country: None (occurrence: None)
  Receive Date: 20051129
  Receipt Date: 20041024
  Transmission Date: 20060501
  Serious: No
  Sender: FDA-Public Use
  Company Number: US-GLAXOSMITHKLINE-A0535157A

PATIENT
  Age: 49 Year
  Sex: Female
  Weight: 75 kg

DRUGS (2)
  1. WELLBUTRIN SR [Suspect]
     Indication: DEPRESSION
     Dosage: 100MG TWICE PER DAY
     Route: 048
     Dates: start: 19990901
  2. EFFEXOR XR [Concomitant]
     Indication: DEPRESSION
     Dosage: 112.5MG PER DAY
     Route: 048
     Dates: start: 20030923

REACTIONS (3)
  - ANGER [None]
  - FALL [None]
  - NYSTAGMUS [None]
